FAERS Safety Report 23658743 (Version 1)
Quarter: 2024Q1

REPORT INFORMATION
  Report Type: Spontaneous
  Country: US (occurrence: US)
  Receive Date: 20240321
  Receipt Date: 20240321
  Transmission Date: 20240410
  Serious: No
  Sender: FDA-Public Use
  Company Number: US-PFIZER INC-PV202400037843

PATIENT
  Age: 62 Year
  Sex: Female

DRUGS (4)
  1. LINEZOLID [Suspect]
     Active Substance: LINEZOLID
     Dosage: 600 MG, DAILY
  2. AZITHROMYCIN [Suspect]
     Active Substance: AZITHROMYCIN
     Dosage: 500 MG, DAILY
  3. CEFOXITIN [Suspect]
     Active Substance: CEFOXITIN SODIUM
     Dosage: 4 G Q (EVERY) 12H
     Route: 042
  4. OMADACYCLINE [Suspect]
     Active Substance: OMADACYCLINE

REACTIONS (3)
  - Rash [Recovering/Resolving]
  - Pruritus [Recovering/Resolving]
  - Off label use [Unknown]
